FAERS Safety Report 9182386 (Version 1)
Quarter: 2013Q1

REPORT INFORMATION
  Report Type: Spontaneous
  Country: US (occurrence: US)
  Receive Date: 20130322
  Receipt Date: 20130322
  Transmission Date: 20140127
  Serious: No
  Sender: FDA-Public Use
  Company Number: US-BRISTOL-MYERS SQUIBB COMPANY-16728388

PATIENT
  Age: 65 Year
  Sex: Female
  Weight: 92.97 kg

DRUGS (1)
  1. ERBITUX [Suspect]
     Indication: LARYNGEAL CANCER
     Dosage: NO OF DOSES-4
     Dates: start: 20120529

REACTIONS (6)
  - Skin ulcer [Unknown]
  - Tongue disorder [Unknown]
  - Ear discomfort [Unknown]
  - Stomatitis [Unknown]
  - Hair growth abnormal [Unknown]
  - Oral mucosal exfoliation [Unknown]
